FAERS Safety Report 13865009 (Version 1)
Quarter: 2017Q3

REPORT INFORMATION
  Report Type: Spontaneous
  Country: IT (occurrence: IT)
  Receive Date: 20170814
  Receipt Date: 20170814
  Transmission Date: 20171127
  Serious: Yes (Other)
  Sender: FDA-Public Use
  Company Number: IT-TEVA-792801ACC

PATIENT
  Age: 48 Year
  Sex: Female

DRUGS (1)
  1. TAMOXIFEN CITRATE. [Suspect]
     Active Substance: TAMOXIFEN CITRATE
     Indication: BREAST CANCER
     Dosage: 20 MILLIGRAM DAILY;
     Route: 048
     Dates: start: 20160622

REACTIONS (1)
  - Vitamin D increased [Not Recovered/Not Resolved]

NARRATIVE: CASE EVENT DATE: 20170714
